FAERS Safety Report 6116871-7 (Version None)
Quarter: 2009Q1

REPORT INFORMATION
  Report Type: 
  Country: None (occurrence: None)
  Receive Date: 20090314
  Receipt Date: 20081230
  Transmission Date: 20090719
  Serious: No
  Sender: FDA-Public Use
  Company Number: US-ABBOTT-08P-163-0495254-00

PATIENT
  Weight: 97.61 kg

DRUGS (6)
  1. HUMIRA [Suspect]
     Indication: RHEUMATOID ARTHRITIS
     Route: 058
     Dates: start: 20080101, end: 20081225
  2. HUMIRA [Suspect]
     Dates: start: 20081229
  3. FENOFIBRATE [Concomitant]
     Indication: BLOOD TRIGLYCERIDES INCREASED
     Dates: start: 20080601
  4. DIOVAN [Concomitant]
     Indication: HYPERTENSION
  5. METHOTREXATE [Concomitant]
     Indication: RHEUMATOID ARTHRITIS
     Dates: start: 20040101, end: 20060101
  6. METHOTREXATE [Concomitant]
     Route: 050
     Dates: start: 20081217

REACTIONS (4)
  - ARTHRALGIA [None]
  - GINGIVAL PAIN [None]
  - GINGIVAL SWELLING [None]
  - INJECTION SITE PAIN [None]
